FAERS Safety Report 24728032 (Version 1)
Quarter: 2024Q4

REPORT INFORMATION
  Report Type: Spontaneous
  Country: US (occurrence: None)
  Receive Date: 20241212
  Receipt Date: 20241212
  Transmission Date: 20250114
  Serious: No
  Sender: Public
  Company Number: None

PATIENT
  Age: 67 Year
  Sex: Female
  Weight: 88 kg

DRUGS (1)
  1. PRAVASTATIN SODIUM [Suspect]
     Active Substance: PRAVASTATIN SODIUM
     Indication: Hyperlipidaemia
     Dosage: FREQUENCY : AT BEDTIME;?
     Route: 048
     Dates: start: 20220124, end: 20220424

REACTIONS (5)
  - Rhabdomyolysis [None]
  - Anxiety [None]
  - Aphthous ulcer [None]
  - Blood creatinine increased [None]
  - Liver function test increased [None]

NARRATIVE: CASE EVENT DATE: 20221101
